FAERS Safety Report 6064432-0 (Version None)
Quarter: 2009Q1

REPORT INFORMATION
  Report Type: 
  Country: None (occurrence: None)
  Receive Date: 20090130
  Receipt Date: 20090114
  Transmission Date: 20090719
  Serious: Yes (Hospitalization)
  Sender: FDA-Public Use
  Company Number: 8041218

PATIENT
  Sex: Female
  Weight: 49.8 kg

DRUGS (9)
  1. KEPPRA [Suspect]
     Indication: CONVULSION
     Dosage: 500 MG 2/D PO
     Route: 048
     Dates: start: 20081201
  2. FOSAMAX [Concomitant]
  3. VITAMIN B-12 [Concomitant]
  4. CATAPRESSAN [Concomitant]
  5. AMLODIPINE [Concomitant]
  6. ASPIRIN [Concomitant]
  7. EXELON [Concomitant]
  8. NAMENDA [Concomitant]
  9. OSCAL D [Concomitant]

REACTIONS (6)
  - ABNORMAL BEHAVIOUR [None]
  - CEREBROVASCULAR ACCIDENT [None]
  - DEHYDRATION [None]
  - URINARY TRACT INFECTION [None]
  - WEIGHT DECREASED [None]
  - WRONG TECHNIQUE IN DRUG USAGE PROCESS [None]
